FAERS Safety Report 15028477 (Version 1)
Quarter: 2018Q2

REPORT INFORMATION
  Report Type: Spontaneous
  Country: BR (occurrence: BR)
  Receive Date: 20180619
  Receipt Date: 20180619
  Transmission Date: 20180711
  Serious: Yes (Other)
  Sender: FDA-Public Use
  Company Number: BR-GLAXOSMITHKLINE-BR2018GSK105081

PATIENT
  Age: 54 Year
  Sex: Female
  Weight: 90 kg

DRUGS (1)
  1. WELLBUTRIN XL [Suspect]
     Active Substance: BUPROPION HYDROCHLORIDE
     Indication: WEIGHT DECREASED
     Dosage: 1 DF, QD
     Route: 048

REACTIONS (8)
  - Dizziness [Unknown]
  - Malaise [Unknown]
  - Apparent death [Unknown]
  - Palpitations [Unknown]
  - Drug prescribing error [Recovered/Resolved]
  - Dyspnoea [Unknown]
  - Product use in unapproved indication [Recovered/Resolved]
  - Expired product administered [Recovered/Resolved]
